FAERS Safety Report 9682058 (Version 1)
Quarter: 2013Q4

REPORT INFORMATION
  Report Type: Spontaneous
  Country: US (occurrence: US)
  Receive Date: 20131111
  Receipt Date: 20131111
  Transmission Date: 20140711
  Serious: Yes (Other)
  Sender: FDA-Public Use
  Company Number: US-BAXTER-2013BAX044398

PATIENT
  Sex: Female

DRUGS (5)
  1. GAMMAGARD LIQUID [Suspect]
     Indication: PRODUCT USED FOR UNKNOWN INDICATION
     Dosage: 50 GM X 2 INFUSIONS 1 WEEK APART
     Route: 042
     Dates: start: 2013
  2. GAMMAGARD LIQUID [Suspect]
     Dosage: 50 GM X 2 SEPARATE INFUSIONS
     Route: 042
  3. GAMMAGARD LIQUID [Suspect]
     Route: 042
     Dates: start: 201011
  4. BENADRYL [Concomitant]
     Indication: PREMEDICATION
     Route: 048
  5. PEPCID [Concomitant]
     Indication: PREMEDICATION
     Route: 048

REACTIONS (2)
  - Sinusitis [Recovering/Resolving]
  - Fatigue [Not Recovered/Not Resolved]
